FAERS Safety Report 5930289-9 (Version None)
Quarter: 2008Q4

REPORT INFORMATION
  Report Type: 
  Country: None (occurrence: None)
  Receive Date: 20081024
  Receipt Date: 20081014
  Transmission Date: 20090506
  Serious: Yes (Other)
  Sender: FDA-Public Use
  Company Number: US-PFIZER INC-2008088403

PATIENT

DRUGS (2)
  1. CHANTIX [Suspect]
     Dates: start: 20080501, end: 20080601
  2. ANALGESICS [Suspect]
     Indication: PAIN

REACTIONS (5)
  - ACTIVITIES OF DAILY LIVING IMPAIRED [None]
  - CHEST PAIN [None]
  - DYSPNOEA [None]
  - OSTEOPOROSIS [None]
  - SPINAL OPERATION [None]
